FAERS Safety Report 10079952 (Version 1)
Quarter: 2014Q2

REPORT INFORMATION
  Report Type: Spontaneous
  Country: GB (occurrence: GB)
  Receive Date: 20140415
  Receipt Date: 20140415
  Transmission Date: 20141212
  Serious: Yes (Death, Disabling)
  Sender: FDA-Public Use
  Company Number: PHHY2014GB042399

PATIENT
  Age: 73 Year
  Sex: Male
  Weight: 108 kg

DRUGS (8)
  1. 5-FLUOROURACIL [Suspect]
     Indication: COLORECTAL CANCER METASTATIC
     Route: 042
     Dates: start: 20130626, end: 20130626
  2. 5-FLUOROURACIL [Suspect]
     Route: 042
     Dates: start: 20130904, end: 20130904
  3. FOLINIC ACID [Suspect]
     Indication: COLORECTAL CANCER METASTATIC
     Dosage: 350 MG, UNK
     Route: 042
     Dates: start: 20130904, end: 20130904
  4. FOLINIC ACID [Suspect]
     Dosage: 350 MG, UNK
     Route: 042
     Dates: start: 20130626, end: 20130626
  5. IRINOTECAN [Suspect]
     Indication: COLORECTAL CANCER METASTATIC
     Dosage: 180 MG, UNK
     Route: 042
     Dates: start: 20130904, end: 20130904
  6. IRINOTECAN [Suspect]
     Dosage: 180 MG, UNK
     Route: 042
     Dates: start: 20130626, end: 20130626
  7. EYLEA [Suspect]
     Indication: COLORECTAL CANCER METASTATIC
     Route: 042
     Dates: start: 20130904, end: 20130904
  8. EYLEA [Suspect]
     Dosage: 4 MG/KG, UNK
     Route: 042
     Dates: start: 20130626, end: 20130626

REACTIONS (6)
  - Neoplasm progression [Fatal]
  - Weight decreased [Recovered/Resolved]
  - Abdominal pain upper [Recovered/Resolved]
  - Fatigue [Recovered/Resolved]
  - Blood pressure increased [Recovered/Resolved]
  - Diarrhoea [Recovered/Resolved]
